FAERS Safety Report 20307513 (Version 1)
Quarter: 2022Q1

REPORT INFORMATION
  Report Type: Spontaneous
  Country: PT (occurrence: PT)
  Receive Date: 20220107
  Receipt Date: 20220107
  Transmission Date: 20220423
  Serious: Yes (Hospitalization)
  Sender: FDA-Public Use
  Company Number: None

PATIENT
  Age: 90 Year
  Sex: Male

DRUGS (5)
  1. ASPIRIN [Suspect]
     Active Substance: ASPIRIN
     Indication: Pulmonary embolism
     Dosage: 100 MILLIGRAM DAILY; 1 TABLET/DAY LUNCH (1 MONTH),ADDITIONAL INFORMATION:PULMONARY THROMBOEMBOLISM
     Route: 048
     Dates: start: 20211116, end: 20211130
  2. CLOPIDOGREL [Suspect]
     Active Substance: CLOPIDOGREL BISULFATE
     Indication: Pulmonary embolism
     Dosage: 75 MILLIGRAM DAILY; 1 TABLET/DAY MORNING,ADDITIONAL INFORMATION:PULMONARY THROMBOEMBOLISM
     Route: 048
     Dates: start: 20211116, end: 20211130
  3. LINAGLIPTIN [Concomitant]
     Active Substance: LINAGLIPTIN
     Dosage: 5 MILLIGRAM DAILY; 1 COMP/DAY,UNIT DOSE:5MILLIGRAM
  4. PANTOPRAZOLE [Concomitant]
     Active Substance: PANTOPRAZOLE
     Dosage: 40 MILLIGRAM DAILY; 1 TABLET ON AN EMPTY STOMACH
  5. PREDNISOLONE [Concomitant]
     Active Substance: PREDNISOLONE
     Dosage: 1 TABLET IN THE MORNING AND HALF A TABLET AT LUNCH, UNTIL 11/18/2021 (INCLUSIVE), 1 TABLET D
     Dates: end: 20211118

REACTIONS (3)
  - Haematuria [Recovered/Resolved]
  - Rectal haemorrhage [Recovered/Resolved]
  - Medication error [Recovered/Resolved]

NARRATIVE: CASE EVENT DATE: 20211116
